FAERS Safety Report 18522954 (Version 2)
Quarter: 2020Q4

REPORT INFORMATION
  Report Type: Spontaneous
  Country: US (occurrence: US)
  Receive Date: 20201119
  Receipt Date: 20201207
  Transmission Date: 20210114
  Serious: No
  Sender: FDA-Public Use
  Company Number: US-PFIZER INC-2020205315

PATIENT
  Age: 73 Year
  Sex: Female
  Weight: 73.48 kg

DRUGS (1)
  1. ESTRING [Suspect]
     Active Substance: ESTRADIOL
     Dosage: 2 MG (2MG INSERTED VAGINALLY EVERY 3 MONTHS)
     Route: 067

REACTIONS (3)
  - Off label use [Unknown]
  - Visual impairment [Unknown]
  - Product use issue [Unknown]
